FAERS Safety Report 17962192 (Version 1)
Quarter: 2020Q2

REPORT INFORMATION
  Report Type: Other
  Country: IT (occurrence: IT)
  Receive Date: 20200630
  Receipt Date: 20200630
  Transmission Date: 20200714
  Serious: Yes (Congenital Anomaly, Other)
  Sender: FDA-Public Use
  Company Number: IT-NUVO PHARMACEUTICALS INC-2086856

PATIENT
  Sex: Female
  Weight: 2.02 kg

DRUGS (4)
  1. ACETAMINOPHEN. [Suspect]
     Active Substance: ACETAMINOPHEN
     Route: 064
  2. LORAZEPAM. [Suspect]
     Active Substance: LORAZEPAM
     Route: 064
  3. DIAZEPAM. [Suspect]
     Active Substance: DIAZEPAM
     Indication: FOETAL EXPOSURE DURING PREGNANCY
     Route: 064
  4. SERTRALINE [Suspect]
     Active Substance: SERTRALINE HYDROCHLORIDE
     Route: 064

REACTIONS (7)
  - Ductus arteriosus premature closure [Unknown]
  - Hypoxia [Unknown]
  - Premature baby [Unknown]
  - Newborn persistent pulmonary hypertension [Recovering/Resolving]
  - Cardiomegaly [Unknown]
  - Right ventricular hypertrophy [Recovered/Resolved]
  - Systolic dysfunction [Recovered/Resolved]
